FAERS Safety Report 7140940-6 (Version None)
Quarter: 2010Q4

REPORT INFORMATION
  Report Type: 
  Country: None (occurrence: None)
  Receive Date: 20101201
  Receipt Date: 20101201
  Transmission Date: 20110411
  Serious: Yes (Life-Threatening, Other)
  Sender: FDA-Public Use
  Company Number: None

PATIENT
  Age: 44 Year
  Sex: Female
  Weight: 56.6996 kg

DRUGS (2)
  1. BOTOX [Suspect]
     Dates: start: 20090415, end: 20090415
  2. BOTOX [Suspect]
     Dates: start: 20091122, end: 20091122

REACTIONS (12)
  - BONE PAIN [None]
  - COGNITIVE DISORDER [None]
  - CONFUSIONAL STATE [None]
  - DEPRESSION [None]
  - DYSPHONIA [None]
  - DYSPNOEA [None]
  - EXERCISE LACK OF [None]
  - INFLUENZA LIKE ILLNESS [None]
  - MENTAL IMPAIRMENT [None]
  - SKIN WRINKLING [None]
  - SPEECH DISORDER [None]
  - WEIGHT INCREASED [None]
